FAERS Safety Report 5637363-5 (Version None)
Quarter: 2008Q1

REPORT INFORMATION
  Report Type: 
  Country: None (occurrence: None)
  Receive Date: 20080225
  Receipt Date: 20080215
  Transmission Date: 20080703
  Serious: Yes (Other)
  Sender: FDA-Public Use
  Company Number: AU-PFIZER INC-2008006375

PATIENT
  Sex: Female

DRUGS (6)
  1. CELEBREX [Suspect]
     Indication: OSTEOARTHRITIS
     Route: 048
  2. CELEBREX [Suspect]
     Indication: BACK PAIN
  3. ASPIRIN [Concomitant]
  4. PARIET [Concomitant]
     Route: 048
  5. FOSAMAX PLUS D [Concomitant]
     Route: 048
  6. LIPITOR [Concomitant]
     Route: 048

REACTIONS (6)
  - ARTERIOSCLEROSIS [None]
  - FALL [None]
  - HAEMORRHAGE [None]
  - INTERMITTENT CLAUDICATION [None]
  - OSTEOPOROTIC FRACTURE [None]
  - THROMBOSIS [None]
